FAERS Safety Report 25526545 (Version 2)
Quarter: 2025Q3

REPORT INFORMATION
  Report Type: Report from Study
  Country: US (occurrence: US)
  Receive Date: 20250707
  Receipt Date: 20250905
  Transmission Date: 20251021
  Serious: Yes (Other)
  Sender: MALLINCKRODT
  Company Number: US-MALLINCKRODT-MNK202502174

PATIENT
  Age: 61 Year
  Sex: Female

DRUGS (1)
  1. CORTICOTROPIN [Suspect]
     Active Substance: CORTICOTROPIN
     Indication: Sarcoidosis

REACTIONS (4)
  - Spinal operation [Unknown]
  - Seizure [Unknown]
  - Cardiac disorder [Unknown]
  - Pain [Unknown]

NARRATIVE: CASE EVENT DATE: 20250806
